FAERS Safety Report 7387808-8 (Version None)
Quarter: 2011Q1

REPORT INFORMATION
  Report Type: 
  Country: None (occurrence: None)
  Receive Date: 20110331
  Receipt Date: 20110324
  Transmission Date: 20110831
  Serious: Yes (Death)
  Sender: FDA-Public Use
  Company Number: US-GILEAD-2011-0037610

PATIENT
  Sex: Female

DRUGS (7)
  1. LETAIRIS [Suspect]
     Indication: BRONCHIECTASIS
  2. LETAIRIS [Suspect]
     Indication: EMPHYSEMA
  3. LETAIRIS [Suspect]
     Indication: PULMONARY HYPERTENSION
     Route: 048
     Dates: start: 20100401, end: 20110211
  4. LETAIRIS [Suspect]
     Indication: EMBOLISM ARTERIAL
  5. LETAIRIS [Suspect]
     Indication: CHRONIC OBSTRUCTIVE PULMONARY DISEASE
  6. LETAIRIS [Suspect]
     Indication: LUNG ABSCESS
  7. LETAIRIS [Suspect]
     Indication: MITRAL VALVE INCOMPETENCE

REACTIONS (2)
  - RESPIRATORY FAILURE [None]
  - LUNG NEOPLASM MALIGNANT [None]
